FAERS Safety Report 9077657 (Version 1)
Quarter: 2013Q1

REPORT INFORMATION
  Report Type: Spontaneous
  Country: PR (occurrence: PR)
  Receive Date: 20130130
  Receipt Date: 20130130
  Transmission Date: 20140127
  Serious: No
  Sender: FDA-Public Use
  Company Number: PR-ABBOTT-12P-131-0978506-00

PATIENT
  Sex: Female

DRUGS (1)
  1. HUMIRA [Suspect]
     Route: 058

REACTIONS (2)
  - Inflammation [Unknown]
  - Erythema [Unknown]
